FAERS Safety Report 4464586-3 (Version None)
Quarter: 2004Q3

REPORT INFORMATION
  Report Type: 
  Country: None (occurrence: None)
  Receive Date: 20040929
  Receipt Date: 20040922
  Transmission Date: 20050211
  Serious: Yes (Hospitalization, Disabling)
  Sender: FDA-Public Use
  Company Number: TAP2004Q01069

PATIENT
  Age: 43 Year
  Sex: Female

DRUGS (6)
  1. LUPRON DEPOT-3 [Suspect]
     Indication: ENDOMETRIOSIS
     Dosage: 11.25 MG, 1 IN 3 M, INTRA-MUSCULAR
     Route: 030
     Dates: start: 20040527, end: 20040819
  2. NORETHINDRONE [Suspect]
     Indication: BACK DISORDER
     Dosage: 5 MG, 1 IN 1 D
     Dates: start: 20040527, end: 20040826
  3. LISINOPRIL [Concomitant]
  4. HYDROCHLOROTHIAZIDE [Concomitant]
  5. TOPROL (METOPROLOL SUCCINATE) [Concomitant]
  6. CALCIUM (CALCIUM) [Concomitant]

REACTIONS (11)
  - ARTHRALGIA [None]
  - BLOOD CREATINE PHOSPHOKINASE INCREASED [None]
  - CHRONIC FATIGUE SYNDROME [None]
  - FATIGUE [None]
  - HOT FLUSH [None]
  - LETHARGY [None]
  - MENTAL DISORDER [None]
  - MYALGIA [None]
  - SLEEP DISORDER [None]
  - SWELLING FACE [None]
  - TRANSIENT ISCHAEMIC ATTACK [None]
